FAERS Safety Report 15677614 (Version 4)
Quarter: 2018Q4

REPORT INFORMATION
  Report Type: Report from Study
  Country: BR (occurrence: BR)
  Receive Date: 20181130
  Receipt Date: 20181204
  Transmission Date: 20190205
  Serious: Yes (Other)
  Sender: FDA-Public Use
  Company Number: PHHY2018BR170076

PATIENT
  Age: 64 Year
  Sex: Female
  Weight: 78 kg

DRUGS (10)
  1. DIOVAN AMLO FIX [Suspect]
     Active Substance: AMLODIPINE\VALSARTAN
     Dosage: 1 DF, (5 MG AMLODIPINE, 320 MG VALSARTAN)
     Route: 048
     Dates: start: 20181020
  2. ALPRAZOLAM. [Suspect]
     Active Substance: ALPRAZOLAM
     Indication: INSOMNIA
     Dosage: 1 DF, QD, ABOUT TWO YEARS
     Route: 048
  3. CAPTOPRIL. [Suspect]
     Active Substance: CAPTOPRIL
     Indication: HYPERTENSION
  4. FLOXIMED [Suspect]
     Active Substance: CIPROFLOXACIN HYDROCHLORIDE
     Indication: URINARY TRACT INFECTION
     Dosage: 1 DF, Q12H, ABOUT THREE YEARS AGO
     Route: 048
     Dates: end: 201809
  5. DIPYRONE [Suspect]
     Active Substance: DIPYRONE
     Indication: RENAL PAIN
     Dosage: THREE MONTHS AGO
     Route: 048
  6. FLOXIMED [Suspect]
     Active Substance: CIPROFLOXACIN HYDROCHLORIDE
     Indication: GLOMERULONEPHRITIS
  7. DIPYRONE [Suspect]
     Active Substance: DIPYRONE
     Indication: PYREXIA
  8. DIOVAN AMLO FIX [Suspect]
     Active Substance: AMLODIPINE\VALSARTAN
     Indication: HYPERTENSION
     Dosage: 1 DF, (5 MG AMLODIPINE, 320 MG VALSARTAN)
     Route: 048
  9. CAPTOPRIL. [Suspect]
     Active Substance: CAPTOPRIL
     Indication: MALAISE
     Dosage: UNK
     Route: 065
  10. INSULIN [Concomitant]
     Active Substance: INSULIN NOS
     Indication: TYPE 1 DIABETES MELLITUS
     Dosage: 90 ML, QD (50 ML ON FASTING IN THE MORNING AND 40 ML IN THE EVENING BEFORE DINNER)
     Route: 065

REACTIONS (30)
  - Skin discolouration [Unknown]
  - Diabetes mellitus [Unknown]
  - Renal failure [Unknown]
  - Renal disorder [Unknown]
  - Fatigue [Unknown]
  - Condition aggravated [Unknown]
  - Renal infarct [Unknown]
  - Blood pressure increased [Not Recovered/Not Resolved]
  - Malaise [Unknown]
  - Inflammation [Unknown]
  - Dyspnoea [Recovering/Resolving]
  - Abdominal pain upper [Recovered/Resolved]
  - Glomerulonephritis chronic [Unknown]
  - Cardiac disorder [Unknown]
  - Urinary tract infection [Recovering/Resolving]
  - Fall [Unknown]
  - Back pain [Not Recovered/Not Resolved]
  - Memory impairment [Unknown]
  - Renal cyst [Unknown]
  - Syncope [Recovered/Resolved]
  - Pyrexia [Recovering/Resolving]
  - Chest pain [Recovered/Resolved]
  - Vision blurred [Recovering/Resolving]
  - Musculoskeletal stiffness [Unknown]
  - Pain in extremity [Unknown]
  - Coronary artery disease [Unknown]
  - Vein disorder [Unknown]
  - Headache [Recovered/Resolved]
  - Renal pain [Unknown]
  - Drug ineffective [Unknown]

NARRATIVE: CASE EVENT DATE: 201809
